FAERS Safety Report 6293021-8 (Version None)
Quarter: 2009Q3

REPORT INFORMATION
  Report Type: 
  Country: None (occurrence: None)
  Receive Date: 20090731
  Receipt Date: 20090721
  Transmission Date: 20100115
  Serious: Yes (Hospitalization)
  Sender: FDA-Public Use
  Company Number: US-GILEAD-2009-0023234

PATIENT
  Age: 52 Year
  Sex: Female

DRUGS (2)
  1. ATRIPLA [Suspect]
     Indication: HIV INFECTION
     Route: 048
     Dates: start: 20060101
  2. EFAVIRENZ [Concomitant]
     Indication: HIV INFECTION

REACTIONS (2)
  - ALCOHOL POISONING [None]
  - ELECTROCARDIOGRAM QT PROLONGED [None]
